FAERS Safety Report 8585349-3 (Version None)
Quarter: 2012Q2

REPORT INFORMATION
  Report Type: 
  Country: None (occurrence: None)
  Receive Date: 20120423
  Receipt Date: 20100604
  Transmission Date: 20120825
  Serious: Yes (Hospitalization)
  Sender: FDA-Public Use
  Company Number: PHEH2010US01511

PATIENT
  Age: 35 Year
  Sex: Female

DRUGS (1)
  1. EXJADE [Suspect]
     Dosage: 1000 MG, QD, ORAL
     Route: 048

REACTIONS (1)
  - SICKLE CELL ANAEMIA WITH CRISIS [None]
